FAERS Safety Report 20447507 (Version 1)
Quarter: 2022Q1

REPORT INFORMATION
  Report Type: Report from Study
  Country: US (occurrence: US)
  Receive Date: 20220209
  Receipt Date: 20220209
  Transmission Date: 20220423
  Serious: No
  Sender: FDA-Public Use
  Company Number: US-HRARD-2021000035

PATIENT
  Age: 47 Year
  Sex: Female

DRUGS (7)
  1. LYSODREN [Suspect]
     Active Substance: MITOTANE
     Dosage: 500 MG TWICE DAILY
     Route: 048
     Dates: start: 20210120
  2. AMLODIPINE [Concomitant]
     Active Substance: AMLODIPINE BESYLATE
  3. PREDNISONE [Concomitant]
     Active Substance: PREDNISONE
  4. SYNTHROID [Concomitant]
     Active Substance: LEVOTHYROXINE SODIUM
  5. ZOFRAN [Concomitant]
     Active Substance: ONDANSETRON HYDROCHLORIDE
  6. Fludrocort [Concomitant]
  7. LISINOPRIL [Concomitant]
     Active Substance: LISINOPRIL

REACTIONS (3)
  - Wrong technique in product usage process [Unknown]
  - Product use complaint [Unknown]
  - Product dose omission issue [Unknown]

NARRATIVE: CASE EVENT DATE: 20210311
